FAERS Safety Report 5764435-7 (Version None)
Quarter: 2008Q2

REPORT INFORMATION
  Report Type: 
  Country: None (occurrence: None)
  Receive Date: 20080605
  Receipt Date: 20080522
  Transmission Date: 20081010
  Serious: Yes (Death, Hospitalization)
  Sender: FDA-Public Use
  Company Number: A-US2008-20682

PATIENT
  Age: 37 Year
  Sex: Female

DRUGS (4)
  1. TRACLEER [Suspect]
     Indication: PULMONARY HYPERTENSION
     Dosage: 125 MG, BID, ORAL
     Route: 048
     Dates: start: 20060201
  2. WARFARIN SODIUM [Concomitant]
  3. REMODULIN (TREPROSTINIL) [Concomitant]
  4. REVATIO (SILDENAFIL CITRATE) [Concomitant]

REACTIONS (7)
  - ASCITES [None]
  - CARDIAC ARREST [None]
  - FLUID OVERLOAD [None]
  - INTRA-ABDOMINAL HAEMORRHAGE [None]
  - PERITONEAL HAEMORRHAGE [None]
  - POST PROCEDURAL HAEMORRHAGE [None]
  - RIGHT VENTRICULAR FAILURE [None]
